FAERS Safety Report 8455136-5 (Version None)
Quarter: 2012Q2

REPORT INFORMATION
  Report Type: 
  Country: None (occurrence: None)
  Receive Date: 20120615
  Receipt Date: 20120615
  Transmission Date: 20120825
  Serious: No
  Sender: FDA-Public Use
  Company Number: None

PATIENT
  Sex: Female

DRUGS (2)
  1. AUGMENTIN '875' [Suspect]
     Indication: ENDODONTIC PROCEDURE
     Dosage: 125 MG, TWICE A DAY, PO
     Route: 048
     Dates: start: 20120611, end: 20120613
  2. AUGMENTIN '875' [Suspect]
     Indication: INFECTION
     Dosage: 125 MG, TWICE A DAY, PO
     Route: 048
     Dates: start: 20120611, end: 20120613

REACTIONS (3)
  - CHROMATURIA [None]
  - DIARRHOEA [None]
  - ABDOMINAL PAIN UPPER [None]
